FAERS Safety Report 4664312-9 (Version None)
Quarter: 2005Q2

REPORT INFORMATION
  Report Type: 
  Country: None (occurrence: None)
  Receive Date: 20050518
  Receipt Date: 20050513
  Transmission Date: 20051028
  Serious: Yes (Death, Life-Threatening, Hospitalization)
  Sender: FDA-Public Use
  Company Number: US-BRISTOL-MYERS SQUIBB COMPANY-12969465

PATIENT
  Age: 64 Year
  Sex: Female
  Weight: 38 kg

DRUGS (4)
  1. CETUXIMAB [Suspect]
     Indication: CERVIX CARCINOMA RECURRENT
     Dosage: INTERRUPTED AND SUBSEQUENTLY DISCONTINUED.
     Route: 042
     Dates: start: 20050428, end: 20050428
  2. CISPLATIN [Suspect]
     Indication: CERVIX CARCINOMA RECURRENT
     Dosage: INTERRUPTED AND SUBSEQUENTLY DISCONTINUED.
     Route: 042
     Dates: start: 20050421, end: 20050421
  3. ATENOLOL [Concomitant]
     Indication: HYPERTENSION
     Route: 048
     Dates: start: 19970101
  4. EPOGEN [Concomitant]
     Indication: ANAEMIA
     Dosage: 40 K ADMINISTERED.
     Route: 058
     Dates: start: 20050506, end: 20050506

REACTIONS (12)
  - BLOOD SODIUM DECREASED [None]
  - DEHYDRATION [None]
  - ELECTROLYTE IMBALANCE [None]
  - FATIGUE [None]
  - HAEMATOCRIT DECREASED [None]
  - HAEMOGLOBIN DECREASED [None]
  - ILEUS [None]
  - LOSS OF CONSCIOUSNESS [None]
  - NAUSEA [None]
  - PLATELET COUNT DECREASED [None]
  - PULMONARY EMBOLISM [None]
  - VOMITING [None]
